FAERS Safety Report 14770059 (Version 1)
Quarter: 2018Q2

REPORT INFORMATION
  Report Type: Spontaneous
  Country: JP (occurrence: JP)
  Receive Date: 20180417
  Receipt Date: 20180417
  Transmission Date: 20180711
  Serious: Yes (Hospitalization)
  Sender: FDA-Public Use
  Company Number: JP-TEVA-2018-JP-881969

PATIENT
  Age: 41 Year
  Sex: Male
  Weight: 90 kg

DRUGS (8)
  1. VANCOMYCIN [Interacting]
     Active Substance: VANCOMYCIN
     Dosage: ON DAY 3
     Route: 042
  2. PREGABALIN. [Concomitant]
     Active Substance: PREGABALIN
     Indication: DIABETIC NEUROPATHY
     Route: 065
  3. PIPERACILLIN AND TAZOBACTAM [Interacting]
     Active Substance: PIPERACILLIN SODIUM\TAZOBACTAM SODIUM
     Indication: NECROTISING FASCIITIS
     Route: 065
  4. MEXILETINE [Concomitant]
     Active Substance: MEXILETINE
     Route: 065
  5. VANCOMYCIN [Suspect]
     Active Substance: VANCOMYCIN
     Indication: NECROTISING FASCIITIS
     Route: 042
  6. AMPICILLIN/SULBACTAM [Suspect]
     Active Substance: AMPICILLIN SODIUM\SULBACTAM SODIUM
     Indication: NECROTISING FASCIITIS
     Route: 065
  7. LEVOFLOXACIN. [Concomitant]
     Active Substance: LEVOFLOXACIN
     Indication: PYREXIA
     Route: 048
  8. DULOXETINE. [Concomitant]
     Active Substance: DULOXETINE
     Route: 065

REACTIONS (4)
  - Tubulointerstitial nephritis [Recovered/Resolved]
  - Acute kidney injury [Recovered/Resolved]
  - Renal tubular necrosis [Recovered/Resolved]
  - Drug interaction [Recovered/Resolved]
